FAERS Safety Report 8305075-5 (Version None)
Quarter: 2012Q2

REPORT INFORMATION
  Report Type: 
  Country: None (occurrence: None)
  Receive Date: 20120404
  Receipt Date: 20120319
  Transmission Date: 20120825
  Serious: Yes (Hospitalization, Other)
  Sender: FDA-Public Use
  Company Number: 2012PROUSA01009

PATIENT
  Age: 71 Year
  Sex: Male
  Weight: 102 kg

DRUGS (7)
  1. PROVENGE [Suspect]
     Indication: PROSTATE CANCER METASTATIC
     Dosage: 250 ML, SINGLE, INTRAVENOUS
     Route: 042
     Dates: start: 20120126, end: 20120126
  2. COMPAZINE [Concomitant]
  3. PROVENGE [Suspect]
     Indication: PROSTATE CANCER METASTATIC
     Dosage: 250 ML, SINGLE, INTRAVENOUS
     Route: 042
     Dates: start: 20120209, end: 20120209
  4. MEGACE [Concomitant]
  5. TERAZOSIN HCL [Concomitant]
  6. PROVENGE [Suspect]
     Indication: PROSTATE CANCER METASTATIC
     Dosage: 250ML, SINGLE, INTRAVENOUS
     Route: 042
     Dates: start: 20120112, end: 20120112
  7. NORVASC [Concomitant]

REACTIONS (13)
  - INFUSION RELATED REACTION [None]
  - UPPER-AIRWAY COUGH SYNDROME [None]
  - PAIN [None]
  - OROPHARYNGEAL PAIN [None]
  - TACHYCARDIA [None]
  - COUGH [None]
  - SINUSITIS [None]
  - PYREXIA [None]
  - BLOOD PRESSURE INCREASED [None]
  - HAEMOGLOBIN DECREASED [None]
  - BACK PAIN [None]
  - MALAISE [None]
  - PROTEIN URINE PRESENT [None]
